FAERS Safety Report 23959663 (Version 1)
Quarter: 2024Q2

REPORT INFORMATION
  Report Type: Spontaneous
  Country: CN (occurrence: CN)
  Receive Date: 20240611
  Receipt Date: 20240611
  Transmission Date: 20240716
  Serious: Yes (Other)
  Sender: FDA-Public Use
  Company Number: CN-SPECGX-T202401242

PATIENT
  Age: 82 Year
  Sex: Female
  Weight: 60 kg

DRUGS (1)
  1. TYLOX [Suspect]
     Active Substance: ACETAMINOPHEN\OXYCODONE HYDROCHLORIDE
     Indication: Analgesic therapy
     Dosage: 1 DOSAGE FORM, QID
     Route: 048
     Dates: start: 20240427, end: 20240427

REACTIONS (10)
  - Discomfort [Recovering/Resolving]
  - Chest discomfort [Recovering/Resolving]
  - Temperature intolerance [Recovering/Resolving]
  - Throat tightness [Recovering/Resolving]
  - Nausea [Recovering/Resolving]
  - Dizziness [Recovering/Resolving]
  - Tachypnoea [Recovering/Resolving]
  - Hyperhidrosis [Recovering/Resolving]
  - Dyspnoea [Recovering/Resolving]
  - Blood pressure systolic increased [Recovering/Resolving]

NARRATIVE: CASE EVENT DATE: 20240427
